FAERS Safety Report 10087000 (Version 4)
Quarter: 2014Q4

REPORT INFORMATION
  Report Type: Spontaneous
  Country: JP (occurrence: JP)
  Receive Date: 20140418
  Receipt Date: 20141022
  Transmission Date: 20150528
  Serious: Yes (Hospitalization)
  Sender: FDA-Public Use
  Company Number: JP-BRISTOL-MYERS SQUIBB COMPANY-20637203

PATIENT
  Age: 74 Year
  Sex: Male
  Weight: 72.15 kg

DRUGS (4)
  1. ELIQUIS [Suspect]
     Active Substance: APIXABAN
     Indication: CEREBROVASCULAR ACCIDENT PROPHYLAXIS
     Route: 048
     Dates: start: 20131224, end: 20140117
  2. MAINTATE [Suspect]
     Active Substance: BISOPROLOL FUMARATE
     Indication: ATRIAL FIBRILLATION
     Dosage: TAB
     Route: 048
     Dates: start: 20131218, end: 20140117
  3. CALBLOCK [Concomitant]
     Active Substance: AZELNIDIPINE
     Indication: HYPERTENSION
  4. TAMBOCOR [Concomitant]
     Active Substance: FLECAINIDE ACETATE
     Indication: ATRIAL FIBRILLATION

REACTIONS (1)
  - Organising pneumonia [Recovered/Resolved]

NARRATIVE: CASE EVENT DATE: 20140117
